FAERS Safety Report 10178075 (Version 1)
Quarter: 2014Q2

REPORT INFORMATION
  Report Type: Spontaneous
  Country: US (occurrence: US)
  Receive Date: 20140518
  Receipt Date: 20140518
  Transmission Date: 20141212
  Serious: No
  Sender: FDA-Public Use
  Company Number: US-009507513-1405USA008068

PATIENT
  Sex: Female

DRUGS (1)
  1. DUOFILM LIQUID [Suspect]
     Indication: FINGER DEFORMITY
     Dosage: UNK, UNKNOWN
     Route: 065

REACTIONS (3)
  - Thermal burn [Unknown]
  - Product adhesion issue [Unknown]
  - Off label use [Unknown]
